FAERS Safety Report 6426752-7 (Version None)
Quarter: 2009Q4

REPORT INFORMATION
  Report Type: 
  Country: None (occurrence: None)
  Receive Date: 20091030
  Receipt Date: 20091020
  Transmission Date: 20100525
  Serious: Yes (Other)
  Sender: FDA-Public Use
  Company Number: WAES 0903USA01065

PATIENT
  Age: 46 Year
  Sex: Male

DRUGS (6)
  1. ISENTRESS [Suspect]
     Indication: HIV INFECTION
     Dosage: PO
     Route: 048
     Dates: start: 20080201
  2. REYATAZ [Suspect]
     Indication: HIV INFECTION
     Dates: start: 20080201
  3. NORVIR [Suspect]
     Indication: HIV INFECTION
     Dates: start: 20080201
  4. TRUVADA [Suspect]
     Indication: HIV INFECTION
     Dates: start: 20080201
  5. INTELENCE [Suspect]
     Indication: HIV INFECTION
     Dosage: 100 MG/BID/PO
     Route: 048
     Dates: start: 20080201
  6. PREZISTA [Suspect]
     Indication: HIV INFECTION
     Dosage: 300MG/BID/PO
     Route: 048
     Dates: start: 20080201

REACTIONS (4)
  - FATIGUE [None]
  - HYPERTENSION [None]
  - LIPODYSTROPHY ACQUIRED [None]
  - OSTEONECROSIS [None]
